FAERS Safety Report 9215365 (Version 2)
Quarter: 2013Q2

REPORT INFORMATION
  Report Type: Spontaneous
  Country: GB (occurrence: GB)
  Receive Date: 20130405
  Receipt Date: 20130430
  Transmission Date: 20140414
  Serious: Yes (Other)
  Sender: FDA-Public Use
  Company Number: GB-WATSON-2013-06272

PATIENT
  Sex: Male

DRUGS (2)
  1. AMITRIPTYLINE (UNKNOWN) [Suspect]
     Indication: MIGRAINE
     Dosage: 30 MG, DAILY
     Route: 065
     Dates: start: 2009
  2. SODIUM VALPROATE (UNKNOWN) [Suspect]
     Indication: MIGRAINE
     Dosage: 1200 MG, DAILY
     Route: 065
     Dates: start: 2009

REACTIONS (22)
  - Suicidal ideation [Unknown]
  - Self-injurious ideation [Recovered/Resolved]
  - Violence-related symptom [Recovered/Resolved]
  - Thought withdrawal [Unknown]
  - Aggression [Unknown]
  - Abnormal behaviour [Unknown]
  - Weight increased [Unknown]
  - Fatigue [Unknown]
  - Somnolence [Unknown]
  - Condition aggravated [Unknown]
  - Nightmare [Unknown]
  - Loss of libido [Unknown]
  - Disturbance in attention [Unknown]
  - Amnesia [Unknown]
  - Pollakiuria [Unknown]
  - Apathy [Unknown]
  - Asthenia [Unknown]
  - Mood swings [Unknown]
  - Confusional state [Recovered/Resolved]
  - Restlessness [Unknown]
  - Drug interaction [Unknown]
  - Anxiety [Unknown]
